FAERS Safety Report 5977013-1 (Version None)
Quarter: 2008Q4

REPORT INFORMATION
  Report Type: 
  Country: None (occurrence: None)
  Receive Date: 20081202
  Receipt Date: 20081202
  Transmission Date: 20090506
  Serious: Yes (Death)
  Sender: FDA-Public Use
  Company Number: None

PATIENT
  Age: 58 Year
  Sex: Male
  Weight: 113.85 kg

DRUGS (1)
  1. VARDENAFIL [Suspect]
     Indication: ERECTILE DYSFUNCTION
     Dosage: 10 MG OTHER PO
     Route: 048
     Dates: start: 20081104

REACTIONS (4)
  - ANGINA PECTORIS [None]
  - CHEST PAIN [None]
  - PAIN IN EXTREMITY [None]
  - SUDDEN DEATH [None]
